FAERS Safety Report 26066561 (Version 1)
Quarter: 2025Q4

REPORT INFORMATION
  Report Type: Spontaneous
  Country: US (occurrence: US)
  Receive Date: 20251119
  Receipt Date: 20251119
  Transmission Date: 20260119
  Serious: No
  Sender: NOVO NORDISK
  Company Number: US-NOVOPROD-1463021

PATIENT
  Age: 78 Year
  Sex: Male

DRUGS (1)
  1. NOVOLOG [Suspect]
     Active Substance: INSULIN ASPART
     Indication: Type 2 diabetes mellitus
     Dosage: 5 -10 UNITS WHEN NEEDED
     Route: 058
     Dates: start: 2015

REACTIONS (2)
  - Drug intolerance [Unknown]
  - Blood glucose decreased [Unknown]
